FAERS Safety Report 5832763-2 (Version None)
Quarter: 2008Q3

REPORT INFORMATION
  Report Type: 
  Country: None (occurrence: None)
  Receive Date: 20080804
  Receipt Date: 20080723
  Transmission Date: 20090109
  Serious: Yes (Other)
  Sender: FDA-Public Use
  Company Number: US-PFIZER INC-2008052656

PATIENT
  Sex: Female
  Weight: 74.8 kg

DRUGS (12)
  1. CHANTIX [Suspect]
     Indication: SMOKING CESSATION THERAPY
     Route: 048
     Dates: start: 20080601, end: 20080601
  2. CHANTIX [Suspect]
     Indication: TOBACCO USER
  3. CHANTIX [Suspect]
     Indication: ANAEMIA
  4. LASIX [Concomitant]
  5. LIPITOR [Concomitant]
  6. VITAMIN TAB [Concomitant]
  7. NEXIUM [Concomitant]
  8. CARDIAC THERAPY [Concomitant]
  9. ARANESP [Concomitant]
  10. IRON [Concomitant]
  11. LISINOPRIL [Concomitant]
  12. METOPROLOL [Concomitant]

REACTIONS (2)
  - ASTHENIA [None]
  - GAIT DISTURBANCE [None]
